FAERS Safety Report 7648462-0 (Version None)
Quarter: 2011Q3

REPORT INFORMATION
  Report Type: 
  Country: None (occurrence: None)
  Receive Date: 20110801
  Receipt Date: 20110721
  Transmission Date: 20111222
  Serious: Yes (Other)
  Sender: FDA-Public Use
  Company Number: US-ASTRAZENECA-2011SE44014

PATIENT
  Age: 60 Year
  Sex: Male
  Weight: 81.6 kg

DRUGS (13)
  1. NEURONTIN [Suspect]
     Indication: NEURALGIA
     Route: 065
     Dates: start: 20010101
  2. CLONIDINE [Concomitant]
  3. TOPROL-XL [Concomitant]
     Route: 048
  4. CRESTOR [Interacting]
     Indication: BLOOD CHOLESTEROL INCREASED
     Route: 048
     Dates: end: 20100101
  5. NOVOLOG MIX 70/30 [Concomitant]
  6. HYDROCHLOROTHIAZIDE [Concomitant]
  7. AMLODIPINE [Concomitant]
  8. ALPRAZOLAM [Concomitant]
  9. ZOLOFT [Interacting]
     Indication: DEPRESSION
     Route: 065
     Dates: start: 20010101
  10. PROTONIX [Suspect]
     Indication: GASTROOESOPHAGEAL REFLUX DISEASE
     Route: 065
     Dates: start: 20100101
  11. NEXIUM [Concomitant]
     Route: 048
  12. NOVOLOG [Concomitant]
  13. BENAZEPRIL HYDROCHLORIDE [Concomitant]

REACTIONS (3)
  - ILL-DEFINED DISORDER [None]
  - ABASIA [None]
  - DRUG INTERACTION [None]
